FAERS Safety Report 18056128 (Version 2)
Quarter: 2020Q3

REPORT INFORMATION
  Report Type: Spontaneous
  Country: CN (occurrence: CN)
  Receive Date: 20200722
  Receipt Date: 20200727
  Transmission Date: 20201103
  Serious: Yes (Other)
  Sender: FDA-Public Use
  Company Number: CN-JNJFOC-20200731077

PATIENT
  Age: 65 Year
  Sex: Female

DRUGS (4)
  1. CETIRIZINE HYDROCHLORIDE. [Suspect]
     Active Substance: CETIRIZINE HYDROCHLORIDE
     Indication: SKIN INFECTION
     Dosage: 10 MILLIGRAM
     Route: 065
  2. CETIRIZINE HYDROCHLORIDE. [Suspect]
     Active Substance: CETIRIZINE HYDROCHLORIDE
     Indication: OFF LABEL USE
     Route: 065
  3. TRETINOIN. [Suspect]
     Active Substance: TRETINOIN
     Indication: THERMAL BURN
     Dosage: HIGH DOSE, STRENGTH: 0.025 PERCENT
     Route: 061
  4. RETINOIC [Concomitant]
     Indication: PRODUCT USED FOR UNKNOWN INDICATION
     Route: 065

REACTIONS (20)
  - Papule [Recovering/Resolving]
  - Dermatitis [Recovering/Resolving]
  - Vitiligo [Recovering/Resolving]
  - Oedema [Recovering/Resolving]
  - Macule [Recovering/Resolving]
  - Pyogenic granuloma [Recovering/Resolving]
  - Dermatitis contact [Recovering/Resolving]
  - Sensitive skin [Recovering/Resolving]
  - Skin mass [Recovering/Resolving]
  - Skin lesion [Recovering/Resolving]
  - Scar [Recovering/Resolving]
  - Off label use [Unknown]
  - Enterobacter infection [Recovering/Resolving]
  - Secretion discharge [Recovering/Resolving]
  - Skin infection [Recovering/Resolving]
  - Erythema [Recovering/Resolving]
  - Neutrophilia [Recovering/Resolving]
  - Rash pruritic [Recovering/Resolving]
  - Drug ineffective [Unknown]
  - Treatment noncompliance [Unknown]
